FAERS Safety Report 22089446 (Version 4)
Quarter: 2024Q2

REPORT INFORMATION
  Report Type: Spontaneous
  Country: US (occurrence: US)
  Receive Date: 20230313
  Receipt Date: 20240621
  Transmission Date: 20240716
  Serious: Yes (Hospitalization)
  Sender: FDA-Public Use
  Company Number: US-ABBVIE-4337206

PATIENT
  Age: 71 Year
  Sex: Female
  Weight: 59 kg

DRUGS (1)
  1. IMBRUVICA [Suspect]
     Active Substance: IBRUTINIB
     Indication: Central nervous system lymphoma
     Dosage: FORM STRENGTH: 560 MG
     Route: 048
     Dates: start: 20230227, end: 20230306

REACTIONS (9)
  - Pyrexia [Recovered/Resolved]
  - Protein total increased [Recovering/Resolving]
  - Rash [Recovered/Resolved]
  - Arthralgia [Recovering/Resolving]
  - Arthritis [Recovering/Resolving]
  - Presyncope [Recovered/Resolved]
  - Off label use [Not Recovered/Not Resolved]
  - Blood pressure decreased [Recovered/Resolved]
  - Infection [Unknown]

NARRATIVE: CASE EVENT DATE: 20230307
